FAERS Safety Report 19071969 (Version 9)
Quarter: 2022Q1

REPORT INFORMATION
  Report Type: Report from Study
  Country: AT (occurrence: None)
  Receive Date: 20210330
  Receipt Date: 20220112
  Transmission Date: 20220424
  Serious: Yes (Hospitalization)
  Sender: FDA-Public Use
  Company Number: AT-ROCHE-2794684

PATIENT
  Age: 71 Year
  Sex: Male
  Weight: 78.5 kg

DRUGS (25)
  1. MOSUNETUZUMAB [Suspect]
     Active Substance: MOSUNETUZUMAB
     Indication: Non-Hodgkin^s lymphoma
     Dosage: DATE OF MOST RECENT DOSE OF MOSUNETUZUMAB (2 MG) STUDY DRUG PRIOR TO SAE: 12/MAR/2021
     Route: 042
     Dates: start: 20210305
  2. POLATUZUMAB VEDOTIN [Suspect]
     Active Substance: POLATUZUMAB VEDOTIN
     Indication: Non-Hodgkin^s lymphoma
     Dosage: DATE OF MOST RECENT DOSE OF STUDY DRUG POLATUZUMAB VEDOTIN PRIOR TO SAE: 04/MAR/2021
     Route: 042
     Dates: start: 20210304
  3. CYCLOPHOSPHAMIDE [Suspect]
     Active Substance: CYCLOPHOSPHAMIDE
     Indication: Non-Hodgkin^s lymphoma
     Dosage: DATE OF MOST RECENT DOSE OF STUDY DRUG CYCLOPHOSPHAMIDE PRIOR TO SAE: 04/MAR/2021
     Route: 042
     Dates: start: 20210304
  4. DOXORUBICIN [Suspect]
     Active Substance: DOXORUBICIN
     Indication: Non-Hodgkin^s lymphoma
     Dosage: DATE OF MOST RECENT DOSE OF STUDY DRUG DOXORUBICIN PRIOR TO SAE: 04/MAR/2021
     Route: 042
     Dates: start: 20210304
  5. PREDNISONE [Suspect]
     Active Substance: PREDNISONE
     Indication: Non-Hodgkin^s lymphoma
     Dosage: DATE OF MOST RECENT DOSE OF STUDY DRUG PREDNISONE PRIOR TO SAE: 08/MAR/2021 (ROA CAN BE EITHER IV OR
     Route: 065
     Dates: start: 20210304
  6. RAMIPRIL [Concomitant]
     Active Substance: RAMIPRIL
     Route: 048
     Dates: start: 202103
  7. FILGRASTIM [Concomitant]
     Active Substance: FILGRASTIM
     Route: 058
     Dates: start: 20210308, end: 20210312
  8. ALLOPURINOL [Concomitant]
     Active Substance: ALLOPURINOL
     Route: 048
     Dates: start: 202103
  9. RAPIFEN (AUSTRIA) [Concomitant]
     Dosage: 1 AMPULE
     Route: 042
     Dates: start: 20210303, end: 20210303
  10. SYMBICORT [Concomitant]
     Active Substance: BUDESONIDE\FORMOTEROL FUMARATE DIHYDRATE
     Dosage: 1 PUFF
     Route: 055
  11. FASTURTEC [Concomitant]
     Active Substance: RASBURICASE
     Route: 042
     Dates: start: 20210302, end: 20210302
  12. URAPIDIL [Concomitant]
     Active Substance: URAPIDIL
     Dosage: 0.5 AMPULE
     Route: 042
     Dates: start: 20210303, end: 20210303
  13. TAZOBACTAM [Concomitant]
     Active Substance: TAZOBACTAM
     Route: 042
     Dates: start: 20210306, end: 20210311
  14. FRAGMIN [Concomitant]
     Active Substance: DALTEPARIN SODIUM
     Route: 058
     Dates: start: 20210302, end: 20210304
  15. FRAGMIN [Concomitant]
     Active Substance: DALTEPARIN SODIUM
     Route: 058
     Dates: start: 20210305, end: 20210314
  16. UNASYN [Concomitant]
     Active Substance: AMPICILLIN SODIUM\SULBACTAM SODIUM
     Route: 042
     Dates: start: 20210319, end: 20210324
  17. SERTRALINE HYDROCHLORIDE [Concomitant]
     Active Substance: SERTRALINE HYDROCHLORIDE
     Route: 048
     Dates: start: 20210319
  18. PERFALGAN [Concomitant]
     Active Substance: ACETAMINOPHEN
     Route: 042
     Dates: start: 20210305, end: 20210306
  19. ZOFRAN [Concomitant]
     Active Substance: ONDANSETRON HYDROCHLORIDE
     Indication: Prophylaxis
     Route: 048
     Dates: start: 202103, end: 202103
  20. ZOFRAN [Concomitant]
     Active Substance: ONDANSETRON HYDROCHLORIDE
     Route: 048
     Dates: start: 20210304, end: 202106
  21. ACETAMINOPHEN [Concomitant]
     Active Substance: ACETAMINOPHEN
     Indication: Prophylaxis
     Route: 048
     Dates: start: 20210304, end: 20210623
  22. DIPHENHYDRAMINE HYDROCHLORIDE [Concomitant]
     Active Substance: DIPHENHYDRAMINE HYDROCHLORIDE
     Indication: Prophylaxis
     Route: 042
     Dates: start: 20210304, end: 20210623
  23. MESNA [Concomitant]
     Active Substance: MESNA
     Indication: Prophylaxis
     Dosage: 400 OTHER
     Route: 048
     Dates: start: 202103, end: 202106
  24. DEXAMETHASONE [Concomitant]
     Active Substance: DEXAMETHASONE
     Indication: Prophylaxis
     Route: 042
     Dates: start: 20210312, end: 20210312
  25. DEXAMETHASONE [Concomitant]
     Active Substance: DEXAMETHASONE
     Route: 042
     Dates: start: 20210324, end: 20210324

REACTIONS (1)
  - Infection [Recovered/Resolved]

NARRATIVE: CASE EVENT DATE: 20210319
